FAERS Safety Report 13795563 (Version 3)
Quarter: 2018Q2

REPORT INFORMATION
  Report Type: Not Available
  Country: US (occurrence: US)
  Receive Date: 20170726
  Receipt Date: 20180604
  Transmission Date: 20180711
  Serious: No
  Sender: FDA-Public Use
  Company Number: US-NEUROCRINE BIOSCIENCES INC.-2017NBI00421

PATIENT
  Age: 53 Year
  Sex: Male

DRUGS (5)
  1. LANTANOPROST [Concomitant]
     Active Substance: LATANOPROST
  2. BENZTROPINE. [Concomitant]
     Active Substance: BENZTROPINE
  3. INGREZZA [Suspect]
     Active Substance: VALBENAZINE
     Indication: TARDIVE DYSKINESIA
     Route: 048
     Dates: start: 20170616
  4. OLANZAPINE. [Concomitant]
     Active Substance: OLANZAPINE
  5. PROPRANOLOL [Concomitant]
     Active Substance: PROPRANOLOL HYDROCHLORIDE

REACTIONS (4)
  - Fatigue [Unknown]
  - Dermatitis allergic [Unknown]
  - Fatigue [Recovered/Resolved]
  - Somnolence [Unknown]

NARRATIVE: CASE EVENT DATE: 20170630
